FAERS Safety Report 4698986-3 (Version None)
Quarter: 2005Q2

REPORT INFORMATION
  Report Type: 
  Country: None (occurrence: None)
  Receive Date: 20050622
  Receipt Date: 20050622
  Transmission Date: 20051028
  Serious: Yes (Life-Threatening)
  Sender: FDA-Public Use
  Company Number: None

PATIENT
  Age: 54 Year
  Sex: Female
  Weight: 78.0187 kg

DRUGS (3)
  1. AVASTIN [Suspect]
     Indication: COLON CANCER METASTATIC
     Dosage: 350 MG Q 2 WKS
     Dates: start: 20050202
  2. AVASTIN [Suspect]
     Indication: COLON CANCER METASTATIC
     Dosage: 350 MG Q 2 WKS
     Dates: start: 20050215
  3. AVASTIN [Suspect]
     Indication: COLON CANCER METASTATIC
     Dosage: 350 MG Q 2 WKS
     Dates: start: 20050301

REACTIONS (2)
  - DYSPHONIA [None]
  - PULMONARY EMBOLISM [None]
